FAERS Safety Report 9794568 (Version 3)
Quarter: 2014Q1

REPORT INFORMATION
  Report Type: Spontaneous
  Country: US (occurrence: US)
  Receive Date: 20140102
  Receipt Date: 20140306
  Transmission Date: 20141002
  Serious: No
  Sender: FDA-Public Use
  Company Number: US-009507513-1312USA011055

PATIENT
  Sex: Female

DRUGS (1)
  1. ZIOPTAN [Suspect]
     Dosage: UNK
     Route: 047

REACTIONS (2)
  - Drug effect decreased [Unknown]
  - Drug ineffective [Unknown]
